FAERS Safety Report 11189375 (Version 1)
Quarter: 2015Q2

REPORT INFORMATION
  Report Type: Spontaneous
  Country: JP (occurrence: JP)
  Receive Date: 20150615
  Receipt Date: 20150615
  Transmission Date: 20150821
  Serious: Yes (Other)
  Sender: FDA-Public Use
  Company Number: JP-PFIZER INC-2015195297

PATIENT
  Age: 83 Year
  Sex: Female

DRUGS (1)
  1. XALKORI [Suspect]
     Active Substance: CRIZOTINIB
     Dosage: 500 MG, DAILY
     Route: 048
     Dates: start: 20150523, end: 20150604

REACTIONS (4)
  - Oedema [Recovering/Resolving]
  - Pulmonary congestion [Unknown]
  - Electrolyte imbalance [Unknown]
  - Urinary retention [Unknown]

NARRATIVE: CASE EVENT DATE: 20150601
